FAERS Safety Report 7494672-5 (Version None)
Quarter: 2011Q2

REPORT INFORMATION
  Report Type: 
  Country: None (occurrence: None)
  Receive Date: 20110520
  Receipt Date: 20110512
  Transmission Date: 20111010
  Serious: Yes (Other)
  Sender: FDA-Public Use
  Company Number: GB-GENENTECH-298138

PATIENT
  Sex: Female

DRUGS (8)
  1. IRBESARTAN [Concomitant]
     Indication: HYPERTENSION
     Dosage: 150 MG, UNK
     Route: 048
  2. CALCICHEW D3 [Suspect]
     Indication: OSTEOPENIA
     Dosage: 2 DF, UNK
     Route: 048
  3. MELOXICAM [Concomitant]
     Indication: PRODUCT USED FOR UNKNOWN INDICATION
     Dosage: 15 MG, UNK
     Route: 048
  4. ATORVASTATIN [Concomitant]
     Indication: BLOOD CHOLESTEROL
     Dosage: 20 MG, UNK
     Route: 048
  5. PROZAC [Concomitant]
     Indication: DEPRESSION
     Dosage: 20 MG, UNK
     Route: 048
  6. BENDROFLUAZIDE [Concomitant]
     Indication: HYPERTENSION
     Dosage: 2.5 MG, UNK
     Route: 048
  7. RISEDRONATE SODIUM [Suspect]
     Indication: OSTEOPENIA
     Dosage: 35 MG, 1/WEEK
     Route: 048
  8. RITUXAN [Suspect]
     Indication: RHEUMATOID ARTHRITIS
     Dosage: 1000 MG, UNK
     Route: 042
     Dates: start: 20090821, end: 20090904

REACTIONS (1)
  - BREAST CANCER [None]
